FAERS Safety Report 21608332 (Version 7)
Quarter: 2024Q2

REPORT INFORMATION
  Report Type: Report from Study
  Country: US (occurrence: US)
  Receive Date: 20221117
  Receipt Date: 20240410
  Transmission Date: 20240715
  Serious: No
  Sender: FDA-Public Use
  Company Number: US-002147023-NVSC2022US255912

PATIENT
  Age: 63 Year
  Sex: Female

DRUGS (1)
  1. KESIMPTA [Suspect]
     Active Substance: OFATUMUMAB
     Indication: Product used for unknown indication
     Dosage: 20 MG, QMO
     Route: 058
     Dates: start: 20221015

REACTIONS (14)
  - Malaise [Recovering/Resolving]
  - Head discomfort [Recovering/Resolving]
  - Hyperacusis [Recovering/Resolving]
  - Photosensitivity reaction [Recovering/Resolving]
  - Parosmia [Recovering/Resolving]
  - Constipation [Recovered/Resolved]
  - COVID-19 [Unknown]
  - Nasopharyngitis [Not Recovered/Not Resolved]
  - Paranasal sinus discomfort [Unknown]
  - Oropharyngeal pain [Unknown]
  - Fatigue [Recovering/Resolving]
  - Productive cough [Not Recovered/Not Resolved]
  - Hypersensitivity [Unknown]
  - Dyspepsia [Unknown]

NARRATIVE: CASE EVENT DATE: 20221108
